FAERS Safety Report 25253698 (Version 1)
Quarter: 2025Q2

REPORT INFORMATION
  Report Type: Spontaneous
  Country: US (occurrence: US)
  Receive Date: 20250430
  Receipt Date: 20250430
  Transmission Date: 20250717
  Serious: No
  Sender: LUPIN
  Company Number: US-LUPIN PHARMACEUTICALS INC.-2025-03549

PATIENT
  Age: 77 Year
  Weight: 92.971 kg

DRUGS (1)
  1. ALBUTEROL SULFATE [Suspect]
     Active Substance: ALBUTEROL SULFATE
     Indication: Chronic obstructive pulmonary disease

REACTIONS (3)
  - Wrong technique in product usage process [Unknown]
  - Drug dose omission by device [Unknown]
  - No adverse event [Unknown]
